FAERS Safety Report 12168157 (Version 1)
Quarter: 2016Q1

REPORT INFORMATION
  Report Type: Spontaneous
  Country: US (occurrence: None)
  Receive Date: 20160309
  Receipt Date: 20160309
  Transmission Date: 20160526
  Serious: Yes (Hospitalization)
  Sender: FDA-Public Use
  Company Number: None

PATIENT
  Age: 51 Year
  Sex: Female

DRUGS (2)
  1. EXJADE [Suspect]
     Active Substance: DEFERASIROX
     Indication: MYELODYSPLASTIC SYNDROME
     Dosage: 1000MG STIRRING IN H2O OR JUICE QD PO
     Route: 048
     Dates: start: 20151116
  2. HYDROCOD/IBU [Concomitant]

REACTIONS (3)
  - Mouth ulceration [None]
  - Fungal infection [None]
  - Platelet count decreased [None]

NARRATIVE: CASE EVENT DATE: 201603
